FAERS Safety Report 10609710 (Version 1)
Quarter: 2014Q4

REPORT INFORMATION
  Report Type: Spontaneous
  Country: US (occurrence: US)
  Receive Date: 20141126
  Receipt Date: 20141126
  Transmission Date: 20150529
  Serious: Yes (Death)
  Sender: FDA-Public Use
  Company Number: US-BAYER-2014-171840

PATIENT
  Age: 0 Day

DRUGS (2)
  1. MIRENA [Suspect]
     Active Substance: LEVONORGESTREL
     Dosage: UNK
     Route: 064
  2. MIRENA [Suspect]
     Active Substance: LEVONORGESTREL
     Dosage: UNK
     Route: 064

REACTIONS (3)
  - Premature baby [None]
  - Exposure during pregnancy [None]
  - Death neonatal [Fatal]

NARRATIVE: CASE EVENT DATE: 20130501
